FAERS Safety Report 9462279 (Version 1)
Quarter: 2013Q3

REPORT INFORMATION
  Report Type: Spontaneous
  Country: GB (occurrence: GB)
  Receive Date: 20130816
  Receipt Date: 20130816
  Transmission Date: 20140515
  Serious: Yes (Life-Threatening, Hospitalization, Other)
  Sender: FDA-Public Use
  Company Number: GB-ELI_LILLY_AND_COMPANY-GB201308002720

PATIENT
  Age: 87 Year
  Sex: Female
  Weight: 50 kg

DRUGS (9)
  1. YENTREVE [Suspect]
     Indication: NEUROPATHY PERIPHERAL
     Dosage: 20 MG, BID
     Route: 048
     Dates: start: 20130624, end: 20130702
  2. AMITRIPTYLINE [Concomitant]
     Dosage: UNK, UNKNOWN
     Route: 065
  3. ASPIRIN [Concomitant]
     Dosage: UNK, UNKNOWN
     Route: 065
  4. CARBOMER [Concomitant]
     Dosage: UNK, UNKNOWN
     Route: 065
  5. FERROUS FUMARATE [Concomitant]
     Dosage: UNK, UNKNOWN
     Route: 065
  6. INDAPAMIDE [Concomitant]
     Dosage: UNK, UNKNOWN
     Route: 065
  7. LACTULOSE [Concomitant]
     Dosage: UNK, UNKNOWN
     Route: 065
  8. PARACETAMOL [Concomitant]
     Dosage: UNK, UNKNOWN
     Route: 065
  9. SIMVASTATIN [Concomitant]
     Dosage: UNK, UNKNOWN
     Route: 065

REACTIONS (6)
  - Encephalopathy [Unknown]
  - Hyponatraemia [Recovered/Resolved]
  - Confusional state [Unknown]
  - Somnolence [Unknown]
  - Nausea [Unknown]
  - Vomiting [Unknown]
